FAERS Safety Report 5869003-4 (Version None)
Quarter: 2008Q3

REPORT INFORMATION
  Report Type: 
  Country: None (occurrence: None)
  Receive Date: 20080903
  Receipt Date: 20080829
  Transmission Date: 20090109
  Serious: Yes (Hospitalization)
  Sender: FDA-Public Use
  Company Number: A0690183A

PATIENT
  Age: 47 Year
  Sex: Male

DRUGS (5)
  1. AVANDIA [Suspect]
     Indication: TYPE 2 DIABETES MELLITUS
     Dosage: 4MG TWICE PER DAY
     Route: 048
     Dates: start: 20060901, end: 20070501
  2. GLUCOVANCE [Concomitant]
     Dates: start: 20061020
  3. TRICOR [Concomitant]
     Dosage: 160MG PER DAY
  4. ASPIRIN [Concomitant]
  5. GLUCOPHAGE [Concomitant]

REACTIONS (18)
  - ARTHRALGIA [None]
  - CARDIAC ARREST [None]
  - CEREBROVASCULAR ACCIDENT [None]
  - CHEST PAIN [None]
  - CONDITION AGGRAVATED [None]
  - CORONARY ARTERY OCCLUSION [None]
  - DIABETES MELLITUS [None]
  - HEART INJURY [None]
  - HEPATIC FAILURE [None]
  - HYPERTENSION [None]
  - INJURY [None]
  - LEFT VENTRICULAR HYPERTROPHY [None]
  - LOSS OF EMPLOYMENT [None]
  - MITRAL VALVE INCOMPETENCE [None]
  - MYOCARDIAL INFARCTION [None]
  - MYOPATHY [None]
  - PAIN [None]
  - TRICUSPID VALVE INCOMPETENCE [None]
